FAERS Safety Report 10224159 (Version 1)
Quarter: 2014Q2

REPORT INFORMATION
  Report Type: Spontaneous
  Country: CH (occurrence: None)
  Receive Date: 20140605
  Receipt Date: 20140605
  Transmission Date: 20141212
  Serious: Yes (Death, Other)
  Sender: FDA-Public Use
  Company Number: 20140287

PATIENT
  Age: 75 Year
  Sex: Male

DRUGS (1)
  1. FERINJECT [Suspect]
     Indication: PRODUCT USED FOR UNKNOWN INDICATION
     Dosage: IN 250 ML UNSPEC MEDIUM IV IN 1 HR.
     Route: 041
     Dates: start: 20140422

REACTIONS (2)
  - Circulatory collapse [None]
  - Feeling hot [None]
